FAERS Safety Report 7445077-4 (Version None)
Quarter: 2011Q2

REPORT INFORMATION
  Report Type: 
  Country: None (occurrence: None)
  Receive Date: 20110429
  Receipt Date: 20110418
  Transmission Date: 20111010
  Serious: Yes (Hospitalization, Other)
  Sender: FDA-Public Use
  Company Number: IE-US-EMD SERONO, INC.-230001J09IRL

PATIENT
  Sex: Male

DRUGS (3)
  1. REBIF [Suspect]
     Route: 058
     Dates: end: 20090901
  2. NAUDICELLE [Concomitant]
  3. REBIF [Suspect]
     Indication: MULTIPLE SCLEROSIS
     Route: 058
     Dates: start: 20081110, end: 20090802

REACTIONS (4)
  - STATUS EPILEPTICUS [None]
  - MULTIPLE SCLEROSIS RELAPSE [None]
  - CONVULSION [None]
  - PNEUMONIA ASPIRATION [None]
